FAERS Safety Report 20794005 (Version 1)
Quarter: 2022Q2

REPORT INFORMATION
  Report Type: Spontaneous
  Country: JP (occurrence: JP)
  Receive Date: 20220506
  Receipt Date: 20220506
  Transmission Date: 20220721
  Serious: Yes (Other)
  Sender: FDA-Public Use
  Company Number: JP-ASTELLAS-2022JP005537

PATIENT
  Age: 8 Decade
  Sex: Female

DRUGS (2)
  1. PROGRAF [Suspect]
     Active Substance: TACROLIMUS
     Indication: Myasthenia gravis
     Dosage: 3 MG, ONCE DAILY, AFTER BREAKFAST
     Route: 048
  2. PROGRAF [Suspect]
     Active Substance: TACROLIMUS
     Route: 048

REACTIONS (3)
  - Physical deconditioning [Recovered/Resolved]
  - Product use issue [Unknown]
  - Product administration interrupted [Unknown]
